FAERS Safety Report 21870110 (Version 3)
Quarter: 2023Q1

REPORT INFORMATION
  Report Type: Spontaneous
  Country: US (occurrence: US)
  Receive Date: 20230117
  Receipt Date: 20230227
  Transmission Date: 20230417
  Serious: No
  Sender: FDA-Public Use
  Company Number: US-JNJFOC-20230127054

PATIENT
  Age: 63 Year
  Sex: Female
  Weight: 69.462 kg

DRUGS (3)
  1. INVEGA TRINZA [Suspect]
     Active Substance: PALIPERIDONE PALMITATE
     Indication: Schizophrenia
     Dosage: THERAPY START DATE: 11/JAN/2023
     Route: 030
     Dates: start: 20190422
  2. INVEGA TRINZA [Suspect]
     Active Substance: PALIPERIDONE PALMITATE
  3. INVEGA TRINZA [Suspect]
     Active Substance: PALIPERIDONE PALMITATE

REACTIONS (2)
  - Needle issue [Unknown]
  - Underdose [Unknown]

NARRATIVE: CASE EVENT DATE: 20230104
